FAERS Safety Report 15111786 (Version 1)
Quarter: 2018Q3

REPORT INFORMATION
  Report Type: Report from Study
  Country: DE (occurrence: DE)
  Receive Date: 20180705
  Receipt Date: 20180705
  Transmission Date: 20181010
  Serious: Yes (Congenital Anomaly)
  Sender: FDA-Public Use
  Company Number: DE-TEVA-2018-DE-919878

PATIENT
  Sex: Male

DRUGS (7)
  1. METFORMIN [Concomitant]
     Active Substance: METFORMIN HYDROCHLORIDE
     Dosage: EXPOSURE DURATION: 0?6+4 WEEKS
     Route: 064
  2. SITAGLIPTIN [Concomitant]
     Active Substance: SITAGLIPTIN
     Dosage: EXPOSURE DURATION: 0?6+4 WEEKS
     Route: 064
  3. METOPROLOL. [Concomitant]
     Active Substance: METOPROLOL
     Dosage: EXPOSURE DURATION: 7+4?35+3 WEEKS
     Route: 064
  4. RAMIPRIL. [Suspect]
     Active Substance: RAMIPRIL
     Indication: HYPERTENSION
     Dosage: EXPOSURE DURATION: 0?6+4 WEEKS
     Route: 064
  5. METHYLDOPA. [Concomitant]
     Active Substance: METHYLDOPA
     Dosage: EXPOSURE DURATION: 7+4?35+3 WEEKS
     Route: 064
  6. L?THYROXINE [Concomitant]
     Active Substance: LEVOTHYROXINE
     Dosage: EXPOSURE DURATION: 0?35+3 WEEKS
     Route: 064
  7. INSULIN [Concomitant]
     Active Substance: INSULIN NOS
     Dosage: EXPOSURE DURATION: 0?35+3 WEEKS
     Route: 064

REACTIONS (2)
  - Foetal exposure during pregnancy [Unknown]
  - Atrial septal defect [Unknown]
